FAERS Safety Report 9264178 (Version 1)
Quarter: 2013Q2

REPORT INFORMATION
  Report Type: Spontaneous
  Country: US (occurrence: US)
  Receive Date: 20130430
  Receipt Date: 20130430
  Transmission Date: 20140414
  Serious: Yes (Death)
  Sender: FDA-Public Use
  Company Number: US-PFIZER INC-2013132381

PATIENT
  Age: 65 Year
  Sex: Male

DRUGS (1)
  1. XALKORI [Suspect]
     Indication: LYMPHOMA
     Dosage: 250 MG, 2X/DAY (ONCE CAPSULE)
     Dates: start: 20130301

REACTIONS (2)
  - Respiratory arrest [Fatal]
  - Off label use [Fatal]
